FAERS Safety Report 6529449-8 (Version None)
Quarter: 2010Q1

REPORT INFORMATION
  Report Type: 
  Country: None (occurrence: None)
  Receive Date: 20100107
  Receipt Date: 20091230
  Transmission Date: 20100710
  Serious: Yes (Hospitalization)
  Sender: FDA-Public Use
  Company Number: AU-NOVOPROD-302598

PATIENT
  Age: 77 Year
  Sex: Female

DRUGS (2)
  1. NOVOMIX 30 [Suspect]
     Indication: TYPE 2 DIABETES MELLITUS
     Dosage: 65 U, QD, 35 UNITS IN THE MORNING AND 30 UNITS IN THE EVENING
     Dates: start: 20091218
  2. NOVOMIX 30 [Suspect]
     Dosage: 75 U, QD, 40 UNITS IN THE MORNING AND 35 UNITS IN THE EVENING
     Route: 058
     Dates: start: 20091228

REACTIONS (3)
  - ABDOMINAL PAIN UPPER [None]
  - BLOOD GLUCOSE FLUCTUATION [None]
  - POLYP [None]
